FAERS Safety Report 7880183-1 (Version None)
Quarter: 2011Q4

REPORT INFORMATION
  Report Type: 
  Country: None (occurrence: None)
  Receive Date: 20111101
  Receipt Date: 20111025
  Transmission Date: 20120403
  Serious: No
  Sender: FDA-Public Use
  Company Number: US-PFIZER INC-2011260098

PATIENT
  Sex: Female
  Weight: 61.224 kg

DRUGS (3)
  1. TYLENOL-500 [Concomitant]
     Dosage: UNK
  2. ACIPHEX [Concomitant]
     Indication: GASTROOESOPHAGEAL REFLUX DISEASE
     Dosage: UNK
  3. XANAX [Suspect]
     Indication: ANXIETY
     Dosage: 0.125 MG (0.25MG HALF A TABLET), AS NEEDED

REACTIONS (2)
  - FATIGUE [None]
  - SOMNOLENCE [None]
